FAERS Safety Report 24067084 (Version 2)
Quarter: 2024Q3

REPORT INFORMATION
  Report Type: Spontaneous
  Country: US (occurrence: US)
  Receive Date: 20240709
  Receipt Date: 20240710
  Transmission Date: 20241017
  Serious: No
  Sender: ROCHE
  Company Number: US-ROCHE-10000011226

PATIENT
  Age: 53 Year
  Sex: Female

DRUGS (1)
  1. ACTEMRA ACTPEN [Suspect]
     Active Substance: TOCILIZUMAB
     Indication: Product used for unknown indication
     Dosage: 162MG/0.9ML
     Route: 058

REACTIONS (3)
  - Pruritus [Unknown]
  - Swelling [Unknown]
  - Injection site reaction [Unknown]
